FAERS Safety Report 16998182 (Version 1)
Quarter: 2019Q4

REPORT INFORMATION
  Report Type: Spontaneous
  Country: US (occurrence: US)
  Receive Date: 20190925
  Receipt Date: 20190925
  Transmission Date: 20200122
  Serious: No
  Sender: FDA-Public Use
  Company Number: None

PATIENT
  Age: 66 Year
  Sex: Female

DRUGS (1)
  1. TACROLIMUS CAP 1MG [Suspect]
     Active Substance: TACROLIMUS
     Indication: LUNG TRANSPLANT
     Route: 051
     Dates: start: 201809

REACTIONS (3)
  - Sinusitis [None]
  - Drug interaction [None]
  - Bronchitis [None]

NARRATIVE: CASE EVENT DATE: 20190919
